FAERS Safety Report 15686237 (Version 2)
Quarter: 2018Q4

REPORT INFORMATION
  Report Type: Report from Study
  Country: BD (occurrence: BD)
  Receive Date: 20181204
  Receipt Date: 20181211
  Transmission Date: 20190205
  Serious: Yes (Death)
  Sender: FDA-Public Use
  Company Number: PHHY2018BD174308

PATIENT
  Age: 53 Year
  Sex: Male
  Weight: 55 kg

DRUGS (1)
  1. SANDOSTATIN [Suspect]
     Active Substance: OCTREOTIDE ACETATE
     Indication: DIARRHOEA
     Dosage: 0.05 MG, UNK
     Route: 065

REACTIONS (2)
  - Death [Fatal]
  - Therapy non-responder [Unknown]

NARRATIVE: CASE EVENT DATE: 20181118
